FAERS Safety Report 6247446-7 (Version None)
Quarter: 2009Q2

REPORT INFORMATION
  Report Type: 
  Country: None (occurrence: None)
  Receive Date: 20090626
  Receipt Date: 20090619
  Transmission Date: 20091009
  Serious: Yes (Death, Life-Threatening, Hospitalization, Other)
  Sender: FDA-Public Use
  Company Number: GB-ABBOTT-09P-167-0564655-00

PATIENT
  Sex: Female
  Weight: 112 kg

DRUGS (13)
  1. KALETRA [Suspect]
     Indication: ANTIRETROVIRAL THERAPY
     Dosage: 400/100  2 IN 1 DAY
     Route: 048
     Dates: start: 20090216, end: 20090301
  2. KALETRA [Suspect]
     Indication: HIV INFECTION
  3. ETRAVIRINE [Suspect]
     Indication: ANTIRETROVIRAL THERAPY
     Dates: start: 20090129, end: 20090301
  4. ETRAVIRINE [Suspect]
     Indication: HIV INFECTION
  5. RALTEGRAVIR [Suspect]
     Indication: ANTIRETROVIRAL THERAPY
     Route: 048
     Dates: start: 20090129, end: 20090301
  6. DARUNAVIR [Suspect]
     Indication: HIV INFECTION
     Route: 048
     Dates: start: 20090129, end: 20090216
  7. RITONAVIR [Concomitant]
     Indication: ANTIRETROVIRAL THERAPY
     Dates: start: 20090129, end: 20090216
  8. AMLODIPINE [Concomitant]
     Indication: DRUG USE FOR UNKNOWN INDICATION
  9. BENDROFLUMETHIAZIDE [Concomitant]
     Indication: DRUG USE FOR UNKNOWN INDICATION
  10. DICLOFENAC [Concomitant]
     Indication: DRUG USE FOR UNKNOWN INDICATION
  11. ATAZANAVIR SULFATE [Concomitant]
     Indication: HIV INFECTION
     Dates: start: 20050101, end: 20090129
  12. TENOFOVIR [Concomitant]
     Indication: HIV INFECTION
     Dates: start: 20050101, end: 20050129
  13. ABACAVIR [Concomitant]
     Indication: HIV INFECTION
     Dates: start: 20050101, end: 20090129

REACTIONS (12)
  - ACUTE HAEMORRHAGIC CONJUNCTIVITIS [None]
  - ANAEMIA [None]
  - ANOREXIA [None]
  - ARTHRALGIA [None]
  - HEADACHE [None]
  - LIVER FUNCTION TEST ABNORMAL [None]
  - NEUROPATHY PERIPHERAL [None]
  - PYREXIA [None]
  - TACHYCARDIA [None]
  - TEARFULNESS [None]
  - TOXIC EPIDERMAL NECROLYSIS [None]
  - VISUAL IMPAIRMENT [None]
